FAERS Safety Report 7412352-9 (Version None)
Quarter: 2011Q2

REPORT INFORMATION
  Report Type: 
  Country: None (occurrence: None)
  Receive Date: 20110413
  Receipt Date: 20110404
  Transmission Date: 20111010
  Serious: Yes (Hospitalization, Other)
  Sender: FDA-Public Use
  Company Number: US-ASTRAZENECA-2009UW11818

PATIENT
  Age: 72 Year
  Sex: Female

DRUGS (7)
  1. TOPROL-XL [Suspect]
     Route: 048
  2. PLAVIX [Concomitant]
  3. GLUCOPHAGE [Concomitant]
  4. IMDUR [Concomitant]
  5. TRICO [Concomitant]
  6. CRESTOR [Suspect]
     Route: 048
  7. PREVACID [Concomitant]

REACTIONS (8)
  - HEART RATE INCREASED [None]
  - CARDIAC DISORDER [None]
  - PYREXIA [None]
  - HYPERGLYCAEMIA [None]
  - SPINAL DISORDER [None]
  - STENT PLACEMENT [None]
  - DRUG DOSE OMISSION [None]
  - ANGINA PECTORIS [None]
